FAERS Safety Report 12009263 (Version 4)
Quarter: 2016Q2

REPORT INFORMATION
  Report Type: Spontaneous
  Country: IT (occurrence: IT)
  Receive Date: 20160205
  Receipt Date: 20160621
  Transmission Date: 20160815
  Serious: Yes (Hospitalization)
  Sender: FDA-Public Use
  Company Number: IT-ROCHE-1706620

PATIENT
  Age: 77 Year
  Sex: Male
  Weight: 84 kg

DRUGS (1)
  1. GAZYVARO [Suspect]
     Active Substance: OBINUTUZUMAB
     Indication: CHRONIC LYMPHOCYTIC LEUKAEMIA
     Dosage: INFUSION TEMPORARILY DISCONTINUED?1000MG VIAL -1000MG/40ML - 1 VIAL??THERAPY HAS BEEN RESTARTED
     Route: 041
     Dates: start: 20160203, end: 20160203

REACTIONS (2)
  - Infusion related reaction [Recovered/Resolved]
  - Pulmonary oedema [Recovered/Resolved]

NARRATIVE: CASE EVENT DATE: 20160203
